FAERS Safety Report 25814438 (Version 1)
Quarter: 2025Q3

REPORT INFORMATION
  Report Type: Spontaneous
  Country: US (occurrence: US)
  Receive Date: 20250917
  Receipt Date: 20250917
  Transmission Date: 20251020
  Serious: No
  Sender: ALEXION PHARMACEUTICALS
  Company Number: US-AstraZeneca-CH-00951259AP

PATIENT
  Age: 61 Year

DRUGS (1)
  1. BREZTRI [Suspect]
     Active Substance: BUDESONIDE\FORMOTEROL\GLYCOPYRROLATE
     Indication: Product used for unknown indication
     Dosage: 160MCG/9 MCG/4.8MCG TWO INHALATIONS BID
     Route: 065

REACTIONS (5)
  - Incorrect dose administered by device [Unknown]
  - Intentional device misuse [Unknown]
  - Therapeutic product effect decreased [Unknown]
  - Device delivery system issue [Unknown]
  - Asthma [Unknown]
